FAERS Safety Report 5036616-1 (Version None)
Quarter: 2006Q2

REPORT INFORMATION
  Report Type: 
  Country: None (occurrence: None)
  Receive Date: 20060623
  Receipt Date: 20060606
  Transmission Date: 20061013
  Serious: Yes (Hospitalization)
  Sender: FDA-Public Use
  Company Number: FR200606001547

PATIENT
  Age: 84 Year
  Sex: Female

DRUGS (2)
  1. FORTEO [Suspect]
     Indication: OSTEOPOROSIS
     Dosage: 20 UG DAILY (1/D) SUBCUTANEOUS
     Route: 058
     Dates: start: 20060322
  2. FORTEO PEN (FORTEO PEN) [Concomitant]

REACTIONS (4)
  - ABDOMINAL PAIN [None]
  - URINARY INCONTINENCE [None]
  - URINARY RETENTION [None]
  - URINARY TRACT INFECTION [None]
